FAERS Safety Report 13737018 (Version 1)
Quarter: 2017Q3

REPORT INFORMATION
  Report Type: Spontaneous
  Country: US (occurrence: US)
  Receive Date: 20170710
  Receipt Date: 20170710
  Transmission Date: 20171127
  Serious: No
  Sender: FDA-Public Use
  Company Number: US-BAYER-2017-130408

PATIENT
  Age: 83 Year
  Sex: Female
  Weight: 74.97 kg

DRUGS (1)
  1. MIRALAX [Suspect]
     Active Substance: POLYETHYLENE GLYCOL 3350
     Indication: GASTROINTESTINAL DISORDER
     Dosage: ONCE A DAY IN THE MORNING WITH COFFEE DOSE
     Route: 048
     Dates: end: 20170706

REACTIONS (3)
  - Extra dose administered [Unknown]
  - Off label use [Unknown]
  - Product use issue [Unknown]
